FAERS Safety Report 10615046 (Version 12)
Quarter: 2016Q3

REPORT INFORMATION
  Report Type: Report from Study
  Country: CA (occurrence: CA)
  Receive Date: 20141201
  Receipt Date: 20160921
  Transmission Date: 20161109
  Serious: Yes (Hospitalization, Other)
  Sender: FDA-Public Use
  Company Number: PHHY2014CA060616

PATIENT
  Age: 66 Year
  Sex: Female

DRUGS (2)
  1. SANDOSTATIN LAR DEPOT [Suspect]
     Active Substance: OCTREOTIDE ACETATE
     Indication: ACROMEGALY
     Dosage: 20 MG, QMO
     Route: 030
     Dates: start: 20140514, end: 20141002
  2. SANDOSTATIN LAR DEPOT [Suspect]
     Active Substance: OCTREOTIDE ACETATE
     Dosage: 40 MG, QMO
     Route: 030
     Dates: start: 20141030, end: 20151126

REACTIONS (14)
  - Hand fracture [Recovering/Resolving]
  - Neoplasm [Unknown]
  - Headache [Unknown]
  - Haemoglobin increased [Unknown]
  - Nausea [Recovering/Resolving]
  - Hormone level abnormal [Unknown]
  - Diabetes mellitus [Unknown]
  - Blood pressure increased [Unknown]
  - Disturbance in attention [Recovering/Resolving]
  - Osteoporosis [Unknown]
  - Diarrhoea [Recovering/Resolving]
  - Sleep disorder [Unknown]
  - Decreased appetite [Recovering/Resolving]
  - Dizziness [Unknown]

NARRATIVE: CASE EVENT DATE: 2014
